FAERS Safety Report 4913812-2 (Version None)
Quarter: 2006Q1

REPORT INFORMATION
  Report Type: 
  Country: None (occurrence: None)
  Receive Date: 20060216
  Receipt Date: 20060203
  Transmission Date: 20060701
  Serious: Yes (Death, Congenital Anomaly)
  Sender: FDA-Public Use
  Company Number: FR-JNJFOC-20060106080

PATIENT
  Sex: Female

DRUGS (5)
  1. TOPALGIC [Suspect]
     Indication: DRUG USE FOR UNKNOWN INDICATION
  2. SUFENTANIL CITRATE [Suspect]
     Indication: DRUG USE FOR UNKNOWN INDICATION
     Route: 064
  3. THIOPENTAL SODIUM [Suspect]
     Indication: DRUG USE FOR UNKNOWN INDICATION
     Route: 064
  4. CISATRACURIUM BESILATE [Suspect]
     Indication: DRUG USE FOR UNKNOWN INDICATION
     Route: 064
  5. PARACETAMOL (PERFALGAN) [Suspect]
     Indication: DRUG USE FOR UNKNOWN INDICATION
     Route: 064

REACTIONS (1)
  - VATER SYNDROME [None]
